FAERS Safety Report 13450714 (Version 8)
Quarter: 2018Q1

REPORT INFORMATION
  Report Type: Spontaneous
  Country: US (occurrence: US)
  Receive Date: 20170418
  Receipt Date: 20180115
  Transmission Date: 20180508
  Serious: Yes (Other)
  Sender: FDA-Public Use
  Company Number: PHEH2017US011203

PATIENT
  Age: 26 Year
  Sex: Female
  Weight: 61.68 kg

DRUGS (2)
  1. ZOFRAN [Suspect]
     Active Substance: ONDANSETRON HYDROCHLORIDE
     Indication: VOMITING IN PREGNANCY
     Dosage: UNK UNK, Q6H
     Route: 042
     Dates: start: 20031229, end: 20040727
  2. ZOFRAN ODT [Suspect]
     Active Substance: ONDANSETRON HYDROCHLORIDE
     Indication: VOMITING
     Dosage: UNK UNK, QD
     Route: 048
     Dates: start: 20031229, end: 20040727

REACTIONS (15)
  - Emotional distress [Unknown]
  - Asthma [Unknown]
  - Oedema peripheral [Unknown]
  - Antiphospholipid syndrome [Unknown]
  - Injury [Unknown]
  - Anxiety [Unknown]
  - Arthralgia [Unknown]
  - Hypermobility syndrome [Unknown]
  - Premature delivery [Unknown]
  - Depression [Unknown]
  - Migraine [Unknown]
  - Maternal exposure during pregnancy [Unknown]
  - Insomnia [Unknown]
  - Product use in unapproved indication [Unknown]
  - Arthritis [Unknown]

NARRATIVE: CASE EVENT DATE: 20040728
